FAERS Safety Report 14262467 (Version 1)
Quarter: 2017Q4

REPORT INFORMATION
  Report Type: Report from Study
  Country: US (occurrence: US)
  Receive Date: 20171208
  Receipt Date: 20171208
  Transmission Date: 20180321
  Serious: No
  Sender: FDA-Public Use
  Company Number: GB-KYOWAKIRIN-2017BKK001818

PATIENT

DRUGS (1)
  1. GRANISETRON [Suspect]
     Active Substance: GRANISETRON
     Indication: PROPHYLAXIS OF NAUSEA AND VOMITING
     Dosage: 1 DF, 1X/WEEK IF HE COULD GET CHEMO
     Route: 062
     Dates: start: 20170605

REACTIONS (5)
  - Product adhesion issue [Unknown]
  - Nausea [Unknown]
  - Platelet disorder [Unknown]
  - Wrong technique in product usage process [Unknown]
  - Drug administered at inappropriate site [Unknown]

NARRATIVE: CASE EVENT DATE: 201706
